FAERS Safety Report 9715461 (Version 1)
Quarter: 2013Q4

REPORT INFORMATION
  Report Type: Spontaneous
  Country: US (occurrence: US)
  Receive Date: 20131127
  Receipt Date: 20131127
  Transmission Date: 20140711
  Serious: No
  Sender: FDA-Public Use
  Company Number: US-BIOGENIDEC-2013BI112271

PATIENT
  Sex: Female

DRUGS (3)
  1. TYSABRI [Suspect]
     Indication: MULTIPLE SCLEROSIS
     Route: 042
     Dates: start: 20111004, end: 20130130
  2. OMEPRAZOLE [Concomitant]
     Indication: GASTROOESOPHAGEAL REFLUX DISEASE
  3. CITALOPRAM [Concomitant]
     Indication: DEPRESSION

REACTIONS (3)
  - Poor venous access [Recovered/Resolved]
  - Panic attack [Recovered/Resolved]
  - Multiple sclerosis [Recovered/Resolved]
